FAERS Safety Report 17182948 (Version 1)
Quarter: 2019Q4

REPORT INFORMATION
  Report Type: Report from Study
  Country: US (occurrence: US)
  Receive Date: 20191220
  Receipt Date: 20191220
  Transmission Date: 20200122
  Serious: No
  Sender: FDA-Public Use
  Company Number: US-CELGENEUS-USA-20191205924

PATIENT
  Age: 78 Year
  Sex: Male
  Weight: 90 kg

DRUGS (23)
  1. FEDRATINIB [Suspect]
     Active Substance: FEDRATINIB
     Indication: MYELOFIBROSIS
     Dosage: 300 MG X 1 X 1 DAYS
     Route: 048
     Dates: start: 20190918, end: 20191105
  2. ATORVASTATIN [Concomitant]
     Active Substance: ATORVASTATIN
     Indication: HYPERGLYCAEMIA
     Dosage: 10 MG X 1 X 1 DAYS
     Route: 048
     Dates: start: 20190107, end: 20190910
  3. CETIRIZINE [Concomitant]
     Active Substance: CETIRIZINE HYDROCHLORIDE
     Indication: PREMEDICATION
     Dosage: 10 MG X ONCE
     Route: 048
     Dates: start: 20191002, end: 20191002
  4. ESCITALOPRAM OXALATE. [Concomitant]
     Active Substance: ESCITALOPRAM OXALATE
     Indication: ANXIETY
     Dosage: 10 MG X 1 X 1 DAYS
     Route: 048
     Dates: start: 20190719
  5. INSULIN LISPRO [Concomitant]
     Active Substance: INSULIN LISPRO
     Indication: HYPERGLYCAEMIA
     Dosage: 50-60 U X 1 X 1 DAYS
     Route: 058
     Dates: start: 20190719
  6. LEVOFLOXACIN. [Concomitant]
     Active Substance: LEVOFLOXACIN
     Indication: INFECTION PROPHYLAXIS
     Dosage: 500 MG X ONCE
     Route: 042
     Dates: start: 20190910, end: 20190910
  7. ACETAMINOPHEN. [Concomitant]
     Active Substance: ACETAMINOPHEN
     Indication: PRODUCT USED FOR UNKNOWN INDICATION
     Dosage: 650 MG X ONCE
     Route: 048
     Dates: start: 20191002, end: 20191002
  8. TORSEMIDE. [Concomitant]
     Active Substance: TORSEMIDE
     Indication: HYPERTENSION
     Dosage: 20 MG X 1 X 1 DAYS
     Route: 048
     Dates: start: 20190729
  9. ALLOPURINOL. [Concomitant]
     Active Substance: ALLOPURINOL
     Indication: PROPHYLAXIS
     Dosage: 300 MG X 1 X 1 DAYS
     Route: 048
     Dates: start: 20190719
  10. INSULIN GLARGINE [Concomitant]
     Active Substance: INSULIN GLARGINE
     Indication: HYPERGLYCAEMIA
     Dosage: 40 U X 1 X 1 DAYS
     Route: 058
     Dates: start: 20190719
  11. ONDANSETRON [Concomitant]
     Active Substance: ONDANSETRON
     Indication: ANTIEMETIC SUPPORTIVE CARE
     Dosage: 8 MG X 1 X 8 HOURS
     Route: 048
     Dates: start: 20190910
  12. CEFTRIAXONE. [Concomitant]
     Active Substance: CEFTRIAXONE
     Indication: INFECTION PROPHYLAXIS
     Dosage: 2 G X 1 X 12 HOURS
     Route: 042
     Dates: start: 20190910, end: 20190912
  13. DILTIAZEM. [Concomitant]
     Active Substance: DILTIAZEM
     Indication: HYPERTENSION
     Dosage: 120 MG X 2 X 1 DAYS
     Route: 048
     Dates: start: 20190719
  14. PNEUMOVAX 23 [Concomitant]
     Active Substance: PNEUMOCOCCAL VACCINE, POLYVALENT 23
     Indication: IMMUNISATION
     Dosage: 23.0 ML X ONCE
     Route: 042
     Dates: start: 20190909, end: 20190909
  15. SODIUM CHLORIDE 0.9% [Concomitant]
     Active Substance: SODIUM CHLORIDE
     Indication: FLUID REPLACEMENT
     Dosage: 500 ML X CONTINUOUS
     Route: 042
     Dates: start: 20191002, end: 20191002
  16. ACETAMINOPHEN. [Concomitant]
     Active Substance: ACETAMINOPHEN
     Dosage: 650 MG X ONCE
     Route: 048
     Dates: start: 20191016, end: 20191016
  17. CETIRIZINE [Concomitant]
     Active Substance: CETIRIZINE HYDROCHLORIDE
     Dosage: 10 MG X ONCE
     Route: 048
     Dates: start: 20191016, end: 20191016
  18. MULTIVITAMIN [Concomitant]
     Active Substance: VITAMINS
     Indication: SUPPLEMENTATION THERAPY
     Dosage: 1 TABLET X 1 X 1 DAYS
     Route: 048
     Dates: start: 20190719
  19. FAMOTIDINE. [Concomitant]
     Active Substance: FAMOTIDINE
     Indication: GASTROOESOPHAGEAL REFLUX DISEASE
     Dosage: 10 MG X 2 X 1 DAYS
     Route: 048
     Dates: start: 20190910
  20. OMEPRAZOLE. [Concomitant]
     Active Substance: OMEPRAZOLE
     Indication: GASTROOESOPHAGEAL REFLUX DISEASE
     Dosage: 20 MG X 2 X 1 DAYS
     Route: 048
     Dates: start: 20190719, end: 20190910
  21. ERGOCALCIFEROL (VIT D2) [Concomitant]
     Indication: SUPPLEMENTATION THERAPY
     Dosage: 50000 U X 1 X 1 WEEKS
     Route: 048
     Dates: start: 20190719
  22. GADOBENATE DIMEGLUMINE [Concomitant]
     Active Substance: GADOBENATE DIMEGLUMINE
     Indication: MAGNETIC RESONANCE IMAGING
     Dosage: 9 ML X ONCE
     Route: 042
     Dates: start: 20190918, end: 20190918
  23. MAGNESIUM OXIDE. [Concomitant]
     Active Substance: MAGNESIUM OXIDE
     Indication: HYPOMAGNESAEMIA
     Dosage: 400 MG X 2 X 1 DAYS
     Route: 048
     Dates: start: 20190919

REACTIONS (1)
  - Vitamin B1 deficiency [Recovered/Resolved]

NARRATIVE: CASE EVENT DATE: 20191016
